FAERS Safety Report 7235563-4 (Version None)
Quarter: 2011Q1

REPORT INFORMATION
  Report Type: 
  Country: None (occurrence: None)
  Receive Date: 20110120
  Receipt Date: 20110112
  Transmission Date: 20110831
  Serious: Yes (Other)
  Sender: FDA-Public Use
  Company Number: PHHY2010US87783

PATIENT
  Sex: Male
  Weight: 77 kg

DRUGS (12)
  1. ACTOS [Concomitant]
  2. SINEMET CR [Concomitant]
     Dosage: 1 DF, QD
     Route: 048
  3. REQUIP [Concomitant]
     Dosage: 8 MG, UNK
     Route: 048
  4. ASPIRIN [Concomitant]
     Dosage: 325 MG, UNK
     Route: 048
  5. CRESTOR [Concomitant]
     Dosage: 30 MG, UNK
     Route: 048
  6. STALEVO 100 [Suspect]
     Dosage: 150 MG, 5QD
     Route: 048
  7. COZAAR [Concomitant]
     Dosage: 25 MG, UNK
     Route: 048
  8. REQUIP [Concomitant]
     Dosage: 2 MG, UNK
     Route: 048
  9. ADVAIR DISKUS 100/50 [Concomitant]
  10. WELLBUTRIN XL [Concomitant]
     Dosage: 150 MG,
     Route: 048
  11. KLONOPIN [Concomitant]
     Dosage: 4 DF, TID
     Route: 048
  12. NEURONTIN [Concomitant]
     Dosage: 1 DF, TID
     Route: 048

REACTIONS (6)
  - FALL [None]
  - GAIT DISTURBANCE [None]
  - MICTURITION URGENCY [None]
  - ASTHMA [None]
  - LIBIDO INCREASED [None]
  - PAIN IN EXTREMITY [None]
